APPROVED DRUG PRODUCT: DUTASTERIDE AND TAMSULOSIN HYDROCHLORIDE
Active Ingredient: DUTASTERIDE; TAMSULOSIN HYDROCHLORIDE
Strength: 0.5MG;0.4MG
Dosage Form/Route: CAPSULE;ORAL
Application: A202975 | Product #001
Applicant: ACTAVIS LABORATORIES FL INC
Approved: Nov 20, 2015 | RLD: No | RS: No | Type: DISCN